FAERS Safety Report 19987403 (Version 1)
Quarter: 2021Q4

REPORT INFORMATION
  Report Type: Spontaneous
  Country: US (occurrence: US)
  Receive Date: 20211022
  Receipt Date: 20211022
  Transmission Date: 20220303
  Serious: Yes (Life-Threatening, Hospitalization, Other)
  Sender: FDA-Public Use
  Company Number: US-MLMSERVICE-20211008-3150128-1

PATIENT
  Age: 60 Year
  Sex: Male

DRUGS (6)
  1. MORPHINE SULFATE [Suspect]
     Active Substance: MORPHINE SULFATE
     Indication: Neck pain
     Dosage: 4.7 MG, DAILY (STRENGTH 15MG/ML)
     Route: 037
  2. KETAMINE [Concomitant]
     Active Substance: KETAMINE
     Indication: Intervertebral disc operation
     Dosage: 20 MG, UNK
     Route: 042
  3. SUFENTANIL [Concomitant]
     Active Substance: SUFENTANIL
     Indication: Intervertebral disc operation
     Dosage: 23 MCG, UNK
     Route: 042
  4. BUPIVACAINE [Concomitant]
     Active Substance: BUPIVACAINE
     Indication: Neck pain
     Dosage: 3.1 MG, DAILY
     Route: 037
  5. BACLOFEN [Concomitant]
     Active Substance: BACLOFEN
     Indication: Neck pain
     Dosage: 1.25 MG, DAILY
     Route: 037
  6. FENTANYL [Concomitant]
     Active Substance: FENTANYL
     Indication: Intervertebral disc operation
     Dosage: 200 MCG, UNK
     Route: 042

REACTIONS (7)
  - Respiratory failure [Recovering/Resolving]
  - Miosis [Recovering/Resolving]
  - Hypotension [Recovering/Resolving]
  - Mental status changes [Recovering/Resolving]
  - Somnolence [Recovering/Resolving]
  - Hypercapnia [Recovering/Resolving]
  - Respiratory depression [Recovering/Resolving]
